FAERS Safety Report 4673625-6 (Version None)
Quarter: 2005Q2

REPORT INFORMATION
  Report Type: 
  Country: None (occurrence: None)
  Receive Date: 20050525
  Receipt Date: 20050509
  Transmission Date: 20051028
  Serious: Yes (Other)
  Sender: FDA-Public Use
  Company Number: 2005AC00732

PATIENT
  Age: 5 Year
  Sex: Female
  Weight: 5 kg

DRUGS (9)
  1. BUPIVACAINE [Suspect]
     Indication: ANALGESIC EFFECT
     Dosage: BILATERALLY
  2. CHLORAL HYDRATE [Suspect]
     Indication: ANAESTHETIC PREMEDICATION
     Dosage: ONE HOUR PRIOR TO SURGERY
     Route: 048
  3. HALOTHANE [Concomitant]
     Indication: ANAESTHESIA
     Dosage: 0.5-1.0%
  4. VECURONIUM [Concomitant]
     Indication: HYPOTONIA
  5. NEOSTIGMINE [Concomitant]
     Indication: NEUROMUSCULAR BLOCKADE REVERSAL
  6. GLYCOPYRROLATE [Concomitant]
     Indication: NEUROMUSCULAR BLOCKADE REVERSAL
  7. NITROUS OXIDE [Concomitant]
     Indication: ANAESTHESIA
     Dosage: IN OXYGEN
  8. ULTANE [Concomitant]
     Indication: ANAESTHESIA
     Dosage: IN OXYGEN
  9. SUCCINYLCHOLINE [Concomitant]
     Indication: INTUBATION
     Route: 042

REACTIONS (6)
  - ABNORMAL BEHAVIOUR [None]
  - ANAESTHETIC COMPLICATION [None]
  - APNOEA [None]
  - HAEMOGLOBIN DECREASED [None]
  - OXYGEN SATURATION DECREASED [None]
  - POST PROCEDURAL COMPLICATION [None]
